FAERS Safety Report 16446515 (Version 1)
Quarter: 2019Q2

REPORT INFORMATION
  Report Type: Spontaneous
  Country: ES (occurrence: ES)
  Receive Date: 20190618
  Receipt Date: 20190618
  Transmission Date: 20190711
  Serious: Yes (Hospitalization)
  Sender: FDA-Public Use
  Company Number: ES-PFIZER INC-2019255367

PATIENT
  Age: 82 Year
  Sex: Male

DRUGS (1)
  1. DALACIN [Suspect]
     Active Substance: CLINDAMYCIN
     Indication: CELLULITIS
     Dosage: 300 MG, 4X/DAY (EVERY 6 HOURS)
     Route: 048
     Dates: start: 20190101, end: 20190107

REACTIONS (1)
  - Epiglottitis [Recovered/Resolved]

NARRATIVE: CASE EVENT DATE: 20190107
